FAERS Safety Report 4437111-0 (Version None)
Quarter: 2004Q3

REPORT INFORMATION
  Report Type: 
  Country: None (occurrence: None)
  Receive Date: 20040830
  Receipt Date: 20040818
  Transmission Date: 20050211
  Serious: Yes (Hospitalization)
  Sender: FDA-Public Use
  Company Number: FR-BRISTOL-MYERS SQUIBB COMPANY-12677746

PATIENT
  Age: 7 Year
  Sex: Female

DRUGS (4)
  1. BRISTOPEN INJ 1 G [Suspect]
     Indication: STAPHYLOCOCCAL SEPSIS
     Route: 042
     Dates: start: 20040414, end: 20040427
  2. AMIKACIN [Concomitant]
     Indication: STAPHYLOCOCCAL SEPSIS
     Route: 042
     Dates: start: 20040412, end: 20040414
  3. ROCEPHIN [Concomitant]
     Indication: STAPHYLOCOCCAL SEPSIS
     Route: 042
     Dates: start: 20040412, end: 20040414
  4. VANCOMYCIN [Concomitant]
     Indication: STAPHYLOCOCCAL SEPSIS
     Route: 042
     Dates: start: 20040412, end: 20040414

REACTIONS (1)
  - RENAL FAILURE ACUTE [None]
